FAERS Safety Report 23594815 (Version 1)
Quarter: 2024Q1

REPORT INFORMATION
  Report Type: Report from Study
  Country: PT (occurrence: PT)
  Receive Date: 20240305
  Receipt Date: 20240305
  Transmission Date: 20240410
  Serious: Yes (Other)
  Sender: FDA-Public Use
  Company Number: PT-ABBVIE-5595577

PATIENT
  Age: 53 Year
  Sex: Female

DRUGS (4)
  1. SKYRIZI [Suspect]
     Active Substance: RISANKIZUMAB-RZAA
     Indication: Psoriasis
     Dosage: FORM STRENGTH: 75 MG?FREQUENCY TEXT: LOADING DOSE 2
     Route: 058
     Dates: start: 20210924, end: 20210924
  2. SKYRIZI [Suspect]
     Active Substance: RISANKIZUMAB-RZAA
     Dosage: FORM STRENGTH: 75 MG
     Route: 058
     Dates: start: 20211217, end: 2022
  3. SKYRIZI [Suspect]
     Active Substance: RISANKIZUMAB-RZAA
     Dosage: FORM STRENGTH: 75 MG?FREQUENCY TEXT: LOADING DOSE 1
     Route: 058
     Dates: start: 20210827, end: 20210827
  4. SKYRIZI [Suspect]
     Active Substance: RISANKIZUMAB-RZAA
     Dosage: FORM STRENGTH: 150 MG
     Route: 058
     Dates: start: 2022

REACTIONS (1)
  - Urinary tract discomfort [Recovered/Resolved]

NARRATIVE: CASE EVENT DATE: 20240115
